FAERS Safety Report 19196553 (Version 1)
Quarter: 2021Q2

REPORT INFORMATION
  Report Type: Spontaneous
  Country: US (occurrence: US)
  Receive Date: 20210429
  Receipt Date: 20210429
  Transmission Date: 20210717
  Serious: Yes (Disabling)
  Sender: FDA-Public Use
  Company Number: US-BAUSCH-BL-2021-015121

PATIENT
  Age: 65 Year
  Sex: Male

DRUGS (2)
  1. LACTULOSE. [Concomitant]
     Active Substance: LACTULOSE
     Indication: PRODUCT USED FOR UNKNOWN INDICATION
  2. XIFAXAN [Suspect]
     Active Substance: RIFAXIMIN
     Indication: LIVER DISORDER
     Route: 065

REACTIONS (5)
  - Disability [Unknown]
  - General physical health deterioration [Unknown]
  - Feeling abnormal [Unknown]
  - Inability to afford medication [Unknown]
  - Therapy interrupted [Unknown]
